FAERS Safety Report 6406834-6 (Version None)
Quarter: 2009Q4

REPORT INFORMATION
  Report Type: 
  Country: None (occurrence: None)
  Receive Date: 20091020
  Receipt Date: 20091012
  Transmission Date: 20100525
  Serious: Yes (Hospitalization)
  Sender: FDA-Public Use
  Company Number: AU-ASTRAZENECA-2009SE19470

PATIENT
  Age: 55 Year
  Sex: Female

DRUGS (4)
  1. CRESTOR [Suspect]
     Indication: METABOLIC DISORDER
     Route: 048
     Dates: start: 20071105, end: 20071114
  2. COVERSYL PLUS [Concomitant]
     Route: 065
  3. POLICOSANOL [Concomitant]
     Route: 065
  4. VITAMINS [Concomitant]
     Route: 065

REACTIONS (6)
  - BACK PAIN [None]
  - HYPERTENSION [None]
  - INFLUENZA LIKE ILLNESS [None]
  - LETHARGY [None]
  - MYALGIA [None]
  - OROPHARYNGEAL PAIN [None]
